FAERS Safety Report 17999367 (Version 1)
Quarter: 2020Q3

REPORT INFORMATION
  Report Type: Spontaneous
  Country: US (occurrence: US)
  Receive Date: 20200708
  Receipt Date: 20200708
  Transmission Date: 20201103
  Serious: Yes (Other)
  Sender: FDA-Public Use
  Company Number: None

PATIENT
  Age: 24 Year
  Sex: Female
  Weight: 48.08 kg

DRUGS (1)
  1. NEXPLANON [Suspect]
     Active Substance: ETONOGESTREL

REACTIONS (12)
  - Muscle spasms [None]
  - Breast tenderness [None]
  - Weight increased [None]
  - Mood swings [None]
  - Discomfort [None]
  - Dizziness [None]
  - Nausea [None]
  - Pain [None]
  - Contusion [None]
  - Depression [None]
  - Aggression [None]
  - Anxiety [None]

NARRATIVE: CASE EVENT DATE: 20200219
